FAERS Safety Report 5824249-6 (Version None)
Quarter: 2008Q3

REPORT INFORMATION
  Report Type: 
  Country: None (occurrence: None)
  Receive Date: 20080718
  Receipt Date: 20071211
  Transmission Date: 20090109
  Serious: Yes (Hospitalization)
  Sender: FDA-Public Use
  Company Number: A-US2007-18079

PATIENT
  Age: 59 Year
  Sex: Female
  Weight: 136.1 kg

DRUGS (6)
  1. TRACLEER [Suspect]
     Indication: PULMONARY HYPERTENSION
     Dosage: 62.5 MG, BID, ORAL
     Route: 048
     Dates: start: 20070901
  2. TOPROL-XL [Concomitant]
  3. LASIX [Concomitant]
  4. TOPROL-XL [Concomitant]
  5. DIOVAN (HYDROCHLOROTHIAZIDE, VALSARTAN) [Concomitant]
  6. PROTONIX [Concomitant]

REACTIONS (5)
  - HEADACHE [None]
  - OEDEMA PERIPHERAL [None]
  - PITYRIASIS [None]
  - RASH [None]
  - SCAB [None]
